FAERS Safety Report 10954634 (Version 2)
Quarter: 2015Q2

REPORT INFORMATION
  Report Type: Spontaneous
  Country: DE (occurrence: DE)
  Receive Date: 20150325
  Receipt Date: 20150413
  Transmission Date: 20150821
  Serious: Yes (Other)
  Sender: FDA-Public Use
  Company Number: DE-BAYER-2015-051215

PATIENT
  Age: 43 Year
  Sex: Female
  Weight: 85 kg

DRUGS (1)
  1. GADOVIST [Suspect]
     Active Substance: GADOBUTROL
     Indication: ARTHRITIS
     Dosage: 10 MG, ONCE
     Route: 042
     Dates: start: 20150310, end: 20150310

REACTIONS (8)
  - Nausea [None]
  - Vomiting [None]
  - Chills [Recovered/Resolved]
  - Cold sweat [None]
  - Syncope [None]
  - Cardiovascular insufficiency [None]
  - Hypotonia [Recovered/Resolved]
  - Pneumonia aspiration [None]

NARRATIVE: CASE EVENT DATE: 20150310
